FAERS Safety Report 11236984 (Version 3)
Quarter: 2015Q4

REPORT INFORMATION
  Report Type: Spontaneous
  Country: US (occurrence: US)
  Receive Date: 20150703
  Receipt Date: 20151130
  Transmission Date: 20160304
  Serious: No
  Sender: FDA-Public Use
  Company Number: US-ASTRAZENECA-2015SE63092

PATIENT
  Age: 75 Year
  Sex: Female
  Weight: 56.2 kg

DRUGS (7)
  1. FAMOTIDINE. [Concomitant]
     Active Substance: FAMOTIDINE
     Indication: GASTRIC DISORDER
     Route: 048
     Dates: start: 2012
  2. CALCIUM CABONATE WITH VITAMIN D [Concomitant]
     Dosage: DAILY
     Route: 048
  3. LEVOTHYROXINE. [Concomitant]
     Active Substance: LEVOTHYROXINE
     Indication: HYPOTHYROIDISM
     Route: 048
     Dates: start: 1995
  4. CRESTOR [Suspect]
     Active Substance: ROSUVASTATIN CALCIUM
     Indication: BLOOD CHOLESTEROL ABNORMAL
     Route: 048
     Dates: start: 2014
  5. KLONOPIN [Concomitant]
     Active Substance: CLONAZEPAM
     Indication: ANXIETY
     Route: 048
     Dates: start: 2011
  6. VALERIAN ROOT [Concomitant]
     Active Substance: VALERIAN
     Route: 048
  7. VERAPAMIL [Concomitant]
     Active Substance: VERAPAMIL HYDROCHLORIDE
     Indication: CARDIAC DISORDER
     Route: 048

REACTIONS (13)
  - Eructation [Unknown]
  - Hypothyroidism [Unknown]
  - Ocular hyperaemia [Not Recovered/Not Resolved]
  - Chromaturia [Unknown]
  - Madarosis [Unknown]
  - Hiccups [Recovered/Resolved]
  - Abnormal sensation in eye [Recovered/Resolved]
  - Abdominal pain [Unknown]
  - Abdominal distension [Unknown]
  - Sleep disorder due to a general medical condition [Unknown]
  - Flatulence [Unknown]
  - Heart rate irregular [Unknown]
  - Memory impairment [Unknown]

NARRATIVE: CASE EVENT DATE: 2014
